FAERS Safety Report 20872533 (Version 4)
Quarter: 2022Q2

REPORT INFORMATION
  Report Type: Spontaneous
  Country: ES (occurrence: ES)
  Receive Date: 20220525
  Receipt Date: 20220614
  Transmission Date: 20220721
  Serious: Yes (Other)
  Sender: FDA-Public Use
  Company Number: ES-SAMSUNG BIOEPIS-SB-2022-12188

PATIENT
  Age: 40 Year
  Sex: Female

DRUGS (12)
  1. ADALIMUMAB [Suspect]
     Active Substance: ADALIMUMAB
     Indication: Rheumatoid arthritis
     Route: 065
  2. HYDROXYCHLOROQUINE [Concomitant]
     Active Substance: HYDROXYCHLOROQUINE
     Indication: Rheumatoid arthritis
     Route: 065
  3. PREDNISONE [Concomitant]
     Active Substance: PREDNISONE
     Indication: Rheumatoid arthritis
     Route: 065
  4. PREDNISONE [Concomitant]
     Active Substance: PREDNISONE
     Route: 065
  5. PREDNISONE [Concomitant]
     Active Substance: PREDNISONE
     Dosage: UNKNOWN TAPERING DOSE
     Route: 065
  6. ESTROGENS [Concomitant]
     Active Substance: ESTROGENS
     Indication: Product used for unknown indication
     Route: 065
  7. PROGESTERONE [Concomitant]
     Active Substance: PROGESTERONE
     Indication: Product used for unknown indication
     Route: 065
  8. PROGESTERONE [Concomitant]
     Active Substance: PROGESTERONE
     Dosage: UNKNOWN TAPERING DOSE
     Route: 065
  9. TINZAPARIN [Concomitant]
     Active Substance: TINZAPARIN
     Indication: Product used for unknown indication
     Route: 065
  10. ASPIRIN [Concomitant]
     Active Substance: ASPIRIN
     Indication: Product used for unknown indication
     Route: 065
  11. LEVOLEUCOVORIN CALCIUM [Concomitant]
     Active Substance: LEVOLEUCOVORIN CALCIUM
     Indication: Product used for unknown indication
     Route: 065
  12. OXYTOCIN [Concomitant]
     Active Substance: OXYTOCIN
     Indication: Product used for unknown indication
     Dosage: UNKNOWN
     Route: 065

REACTIONS (5)
  - Hypothyroidism [Unknown]
  - Failed induction of labour [Unknown]
  - Anxiety [Unknown]
  - Maternal exposure during pregnancy [Unknown]
  - Off label use [Unknown]
